FAERS Safety Report 11758645 (Version 2)
Quarter: 2015Q4

REPORT INFORMATION
  Report Type: Report from Study
  Country: FR (occurrence: FR)
  Receive Date: 20151120
  Receipt Date: 20151208
  Transmission Date: 20160304
  Serious: Yes (Other)
  Sender: FDA-Public Use
  Company Number: FR-BRISTOL-MYERS SQUIBB COMPANY-BMS-2015-063992

PATIENT
  Age: 30 Year
  Sex: Female
  Weight: 64 kg

DRUGS (9)
  1. NIVOLUMAB [Suspect]
     Active Substance: NIVOLUMAB
     Indication: HODGKIN^S DISEASE
     Dosage: 180 MG, UNK
     Route: 065
     Dates: start: 20150706
  2. ZELITREX [Concomitant]
     Active Substance: VALACYCLOVIR HYDROCHLORIDE
     Indication: PROPHYLAXIS
     Dosage: 500 MG, BID
     Route: 048
     Dates: start: 20140710
  3. AMOXICILLIN. [Concomitant]
     Active Substance: AMOXICILLIN
     Indication: INFECTION
     Dosage: 500 MG, QD
     Route: 048
  4. NIVOLUMAB [Suspect]
     Active Substance: NIVOLUMAB
     Dosage: 190 MG, UNK
     Route: 065
     Dates: start: 20151012
  5. TRIFLUCAN [Concomitant]
     Active Substance: FLUCONAZOLE
     Indication: INFECTION
     Dosage: 400 MG, QD
     Route: 065
  6. BACTRIM [Concomitant]
     Active Substance: SULFAMETHOXAZOLE\TRIMETHOPRIM
     Indication: INFECTION
     Dosage: 1 TAB, TID
     Route: 048
  7. NIVOLUMAB [Suspect]
     Active Substance: NIVOLUMAB
     Dosage: 192 MG, UNK
     Route: 065
     Dates: start: 20150914
  8. NIVOLUMAB [Suspect]
     Active Substance: NIVOLUMAB
     Dosage: 192 MG, UNK
     Route: 065
     Dates: start: 20150831
  9. NIVOLUMAB [Suspect]
     Active Substance: NIVOLUMAB
     Dosage: 190 MG, UNK
     Route: 065
     Dates: start: 20150928

REACTIONS (2)
  - Therapeutic response decreased [Unknown]
  - Thyroiditis [Recovered/Resolved]

NARRATIVE: CASE EVENT DATE: 20150831
